FAERS Safety Report 12331106 (Version 3)
Quarter: 2016Q2

REPORT INFORMATION
  Report Type: Report from Study
  Country: MX (occurrence: MX)
  Receive Date: 20160504
  Receipt Date: 20160513
  Transmission Date: 20160815
  Serious: Yes (Death, Hospitalization, Other)
  Sender: FDA-Public Use
  Company Number: PHHY2016MX058550

PATIENT
  Age: 84 Year
  Sex: Male

DRUGS (2)
  1. EXFORGE HCT [Suspect]
     Active Substance: AMLODIPINE BESYLATE\HYDROCHLOROTHIAZIDE\VALSARTAN
     Indication: ACUTE MYOCARDIAL INFARCTION
     Dosage: 1 DF, QD (UNK/5MG/UNK)
     Route: 048
     Dates: start: 20160306, end: 20160401
  2. ACETYLSALICYLIC ACID [Concomitant]
     Active Substance: ASPIRIN
     Indication: CARDIAC DISORDER
     Dosage: 1 DF, QD
     Route: 048
     Dates: end: 20160401

REACTIONS (7)
  - Pneumonia [Fatal]
  - Renal failure [Recovered/Resolved]
  - Product use issue [Unknown]
  - Thrombosis [Unknown]
  - Acute myocardial infarction [Fatal]
  - Concomitant disease aggravated [Unknown]
  - Pyrexia [Fatal]

NARRATIVE: CASE EVENT DATE: 20160306
